FAERS Safety Report 6910047-9 (Version None)
Quarter: 2010Q3

REPORT INFORMATION
  Report Type: 
  Country: None (occurrence: None)
  Receive Date: 20100806
  Receipt Date: 20100802
  Transmission Date: 20110219
  Serious: Yes (Death, Hospitalization, Other)
  Sender: FDA-Public Use
  Company Number: US-CELGENEUS-163-21880-10062534

PATIENT
  Sex: Male
  Weight: 84.444 kg

DRUGS (33)
  1. REVLIMID [Suspect]
     Indication: MULTIPLE MYELOMA
     Route: 048
     Dates: start: 20090601
  2. REVLIMID [Suspect]
     Route: 048
     Dates: start: 20090904
  3. REVLIMID [Suspect]
     Route: 048
     Dates: start: 20091201, end: 20100115
  4. REVLIMID [Suspect]
     Route: 048
     Dates: start: 20100402, end: 20100505
  5. THALOMID [Suspect]
     Indication: MULTIPLE MYELOMA
     Dosage: 50 TO 100 MG
     Route: 048
     Dates: start: 20100501, end: 20100526
  6. DEXAMETHASONE [Concomitant]
     Indication: PRODUCT USED FOR UNKNOWN INDICATION
     Route: 065
  7. DEXAMETHASONE [Concomitant]
     Route: 065
     Dates: start: 20100504, end: 20100526
  8. DEXAMETHASONE [Concomitant]
     Route: 065
     Dates: start: 20100517, end: 20100526
  9. DEXAMETHASONE [Concomitant]
     Route: 065
  10. BORTEZOMIB [Concomitant]
     Indication: PRODUCT USED FOR UNKNOWN INDICATION
     Route: 065
     Dates: start: 20090608
  11. HYDROMORPHONE [Concomitant]
     Indication: PRODUCT USED FOR UNKNOWN INDICATION
     Route: 048
  12. FENTANYL [Concomitant]
     Indication: PRODUCT USED FOR UNKNOWN INDICATION
     Route: 062
  13. FENTANYL [Concomitant]
     Route: 062
  14. LACTULOSE [Concomitant]
     Indication: CONSTIPATION
     Dosage: 10G/15ML
     Route: 048
  15. NYSTATIN [Concomitant]
     Indication: PRODUCT USED FOR UNKNOWN INDICATION
     Dosage: 100,000 UNITS
     Route: 048
  16. SALT AND SODA SOLUTION [Concomitant]
     Dosage: 5-10ML
     Route: 048
  17. CHLORPROMAZINE [Concomitant]
     Indication: HICCUPS
     Route: 048
  18. GABAPENTIN [Concomitant]
     Route: 048
  19. AMITRIPTYLINE HYDROCHLORIDE [Concomitant]
     Route: 048
  20. OMEPRAZOLE [Concomitant]
     Indication: PRODUCT USED FOR UNKNOWN INDICATION
     Route: 048
  21. ACYCLOVIR [Concomitant]
     Indication: PRODUCT USED FOR UNKNOWN INDICATION
     Route: 048
  22. DOCUSATE SODIUM [Concomitant]
     Indication: PRODUCT USED FOR UNKNOWN INDICATION
     Route: 048
  23. SENNA S [Concomitant]
     Indication: CONSTIPATION
     Dosage: 8-6-50MG
     Route: 048
  24. MYLANTA [Concomitant]
     Indication: PRODUCT USED FOR UNKNOWN INDICATION
     Dosage: 20MG/5ML
     Route: 048
  25. LEVOFLOXACIN [Concomitant]
     Indication: PRODUCT USED FOR UNKNOWN INDICATION
     Route: 048
  26. AMOXICILLIN-POT CLAVULANATE [Concomitant]
     Indication: PRODUCT USED FOR UNKNOWN INDICATION
     Dosage: 875-125MG
     Route: 048
  27. ENOXAPARIN SODIUM [Concomitant]
     Indication: PRODUCT USED FOR UNKNOWN INDICATION
     Dosage: 40MG/0.4ML
     Route: 058
  28. PREDNISONE [Concomitant]
     Indication: PRODUCT USED FOR UNKNOWN INDICATION
     Route: 065
     Dates: start: 20091209, end: 20100115
  29. MELPHALAN [Concomitant]
     Indication: PRODUCT USED FOR UNKNOWN INDICATION
     Route: 065
     Dates: start: 20100127
  30. DOXORUBICIN HCL [Concomitant]
     Indication: PRODUCT USED FOR UNKNOWN INDICATION
     Route: 065
     Dates: start: 20100517
  31. CYCLOPHOSPHAMIDE [Concomitant]
     Indication: PRODUCT USED FOR UNKNOWN INDICATION
     Route: 051
     Dates: start: 20091209, end: 20100115
  32. DILAUDID [Concomitant]
     Indication: BONE PAIN
  33. PAMIDRONATE DISODIUM [Concomitant]
     Indication: PRODUCT USED FOR UNKNOWN INDICATION
     Route: 051

REACTIONS (7)
  - FATIGUE [None]
  - LEUKAEMIA PLASMACYTIC [None]
  - MULTIPLE MYELOMA [None]
  - NEUROPATHY PERIPHERAL [None]
  - PANCYTOPENIA [None]
  - PNEUMONIA [None]
  - RENAL FAILURE ACUTE [None]
